FAERS Safety Report 14666872 (Version 1)
Quarter: 2018Q1

REPORT INFORMATION
  Report Type: Spontaneous
  Country: US (occurrence: US)
  Receive Date: 20180322
  Receipt Date: 20180322
  Transmission Date: 20180509
  Serious: No
  Sender: FDA-Public Use
  Company Number: US-SHIRE-US201808214

PATIENT
  Sex: Female

DRUGS (1)
  1. VYVANSE [Suspect]
     Active Substance: LISDEXAMFETAMINE DIMESYLATE
     Indication: SLEEP DISORDER
     Dosage: 100 MG, 1X/DAY:QD
     Route: 065

REACTIONS (9)
  - Weight increased [Unknown]
  - Palpitations [Unknown]
  - Hunger [Unknown]
  - Anger [Unknown]
  - Drug ineffective [Unknown]
  - Depressed mood [Unknown]
  - Withdrawal syndrome [Unknown]
  - Mood swings [Unknown]
  - Hypersomnia [Unknown]
